FAERS Safety Report 17891502 (Version 2)
Quarter: 2020Q2

REPORT INFORMATION
  Report Type: Spontaneous
  Country: US (occurrence: US)
  Receive Date: 20200612
  Receipt Date: 20200618
  Transmission Date: 20200714
  Serious: Yes (Hospitalization, Other)
  Sender: FDA-Public Use
  Company Number: US-BAYER-2020-104761

PATIENT
  Age: 20 Year
  Sex: Male

DRUGS (1)
  1. CORICIDIN HBP COUGH AND COLD [Suspect]
     Active Substance: CHLORPHENIRAMINE MALEATE\DEXTROMETHORPHAN HYDROBROMIDE
     Dosage: AT LEAST 5 BOXES PER DAY
     Route: 048

REACTIONS (14)
  - Suicide attempt [Unknown]
  - Cerebral disorder [Unknown]
  - Hallucination, auditory [Unknown]
  - Hallucination [Unknown]
  - Delusion [Unknown]
  - Incorrect dose administered [None]
  - Euphoric mood [Unknown]
  - Aggression [Unknown]
  - Drug dependence [Unknown]
  - Mental disorder [Unknown]
  - Traumatic haemorrhage [Unknown]
  - Product use in unapproved indication [Unknown]
  - Heart rate increased [None]
  - Abnormal behaviour [Unknown]
